FAERS Safety Report 7380885-X (Version None)
Quarter: 2011Q1

REPORT INFORMATION
  Report Type: 
  Country: None (occurrence: None)
  Receive Date: 20110329
  Receipt Date: 20110316
  Transmission Date: 20110831
  Serious: Yes (Other)
  Sender: FDA-Public Use
  Company Number: PHHY2011CN22109

PATIENT
  Age: 24 Year
  Sex: Male

DRUGS (3)
  1. SANDIMMUNE [Suspect]
     Indication: HAEMOLYTIC ANAEMIA
     Dosage: 125 MG,
  2. METHYLPREDNISOLONE [Concomitant]
  3. DAXI [Concomitant]

REACTIONS (2)
  - GRAND MAL CONVULSION [None]
  - DEMYELINATION [None]
